FAERS Safety Report 7723610 (Version 14)
Quarter: 2012Q4

REPORT INFORMATION
  Report Type: 
  Country: US (occurrence: US)
  Receive Date: 20101220
  Receipt Date: 20120913
  Transmission Date: 20130627
  Serious: Yes (Hospitalization, Disabling, Other)
  Sender: FDA-Public Use
  Company Number: US-009507513-1012USA02294

PATIENT

DRUGS (5)
  1. FOSAMAX [Suspect]
     Indication: OSTEOPOROSIS
     Dosage: 10 mg, qd
     Route: 048
     Dates: start: 199710, end: 200201
  2. FOSAMAX [Suspect]
     Dosage: 70 mg, QW
     Route: 048
     Dates: start: 20020415, end: 200902
  3. FOSAMAX [Suspect]
     Dosage: 10 mg, QW
     Route: 048
     Dates: end: 20080222
  4. OYST CAL D [Concomitant]
     Indication: OSTEOPOROSIS
     Dosage: 200 mg, bid
     Route: 048
     Dates: start: 20080222
  5. FOSAMAX [Suspect]
     Indication: OSTEOPOROSIS
     Dosage: 70 mg, QW
     Route: 048
     Dates: start: 20080402, end: 20081209

REACTIONS (88)
  - Femur fracture [Not Recovered/Not Resolved]
  - Impaired healing [Unknown]
  - Fracture nonunion [Unknown]
  - Device failure [Not Recovered/Not Resolved]
  - Fall [Unknown]
  - Breast cancer female [Unknown]
  - Pneumonia [Unknown]
  - Tonsillar disorder [Unknown]
  - Haemorrhagic anaemia [Unknown]
  - Enterococcal infection [Unknown]
  - Morganella infection [Unknown]
  - Pseudomonas infection [Unknown]
  - Uterine disorder [Unknown]
  - Haematoma infection [Unknown]
  - Adverse drug reaction [Unknown]
  - Haematocrit abnormal [Unknown]
  - Renal impairment [Recovering/Resolving]
  - Hallucinations, mixed [Recovering/Resolving]
  - Internal fixation of fracture [Unknown]
  - Respiratory acidosis [Unknown]
  - Metabolic alkalosis [Unknown]
  - Fluid overload [Unknown]
  - Decubitus ulcer [Unknown]
  - Increased tendency to bruise [Unknown]
  - Anxiety [Unknown]
  - Depression [Unknown]
  - Myalgia [Unknown]
  - Dysphagia [Unknown]
  - Bone density decreased [Unknown]
  - Adverse event [Unknown]
  - Weight decreased [Unknown]
  - Limb asymmetry [Unknown]
  - Stress fracture [Unknown]
  - Muscle atrophy [Unknown]
  - Bone disorder [Unknown]
  - Bunion [Unknown]
  - Mitral valve prolapse [Unknown]
  - Wrist fracture [Unknown]
  - Pelvic fracture [Unknown]
  - Hypertension [Unknown]
  - Osteoarthritis [Unknown]
  - Compression fracture [Unknown]
  - Bone scan abnormal [Unknown]
  - Diverticulum [Unknown]
  - Arthropathy [Unknown]
  - Pulmonary mass [Unknown]
  - Aortic disorder [Unknown]
  - Scoliosis [Unknown]
  - Pulmonary granuloma [Unknown]
  - Rib fracture [Unknown]
  - Pleural fibrosis [Unknown]
  - Adhesion [Unknown]
  - Pleural effusion [Unknown]
  - Deep vein thrombosis [Unknown]
  - Haemorrhage [Unknown]
  - Pulmonary fibrosis [Unknown]
  - Emphysema [Unknown]
  - Hypergammaglobulinaemia [Unknown]
  - Embolism [Unknown]
  - Interstitial lung disease [Unknown]
  - Osteopenia [Unknown]
  - Spinal osteoarthritis [Unknown]
  - Infection [Unknown]
  - Hypotension [Unknown]
  - Urine output decreased [Unknown]
  - Oliguria [Recovered/Resolved]
  - Atelectasis [Unknown]
  - Pericardial effusion [Unknown]
  - Cholelithiasis [Unknown]
  - Localised intraabdominal fluid collection [Unknown]
  - Spleen disorder [Unknown]
  - Vascular calcification [Unknown]
  - Haematoma [Unknown]
  - Bronchitis [Recovered/Resolved]
  - Cardiomegaly [Unknown]
  - Tooth disorder [Unknown]
  - Thyroid disorder [Unknown]
  - Granuloma [Unknown]
  - Sinus tachycardia [Unknown]
  - Pulmonary hypertension [Unknown]
  - Dilatation ventricular [Unknown]
  - Inappropriate schedule of drug administration [Unknown]
  - Device failure [Unknown]
  - Bone cyst [Unknown]
  - Exostosis [Unknown]
  - Muscle disorder [Unknown]
  - Soft tissue disorder [Unknown]
  - Gastrooesophageal reflux disease [Unknown]
